FAERS Safety Report 23998388 (Version 1)
Quarter: 2024Q2

REPORT INFORMATION
  Report Type: Spontaneous
  Country: KR (occurrence: KR)
  Receive Date: 20240621
  Receipt Date: 20240621
  Transmission Date: 20240716
  Serious: Yes (Hospitalization, Other)
  Sender: FDA-Public Use
  Company Number: KR-ASTELLAS-2024US017631

PATIENT
  Age: 5 Day
  Sex: Male

DRUGS (1)
  1. TACROLIMUS [Suspect]
     Active Substance: TACROLIMUS
     Indication: Still^s disease
     Dosage: UNK UNK, UNKNOWN FREQ.
     Route: 064
     Dates: start: 202202

REACTIONS (3)
  - Haemophagocytic lymphohistiocytosis [Recovering/Resolving]
  - Premature baby [Recovering/Resolving]
  - Foetal exposure during pregnancy [Unknown]

NARRATIVE: CASE EVENT DATE: 20220201
